FAERS Safety Report 8800499 (Version 2)
Quarter: 2015Q1

REPORT INFORMATION
  Report Type: Report from Study
  Country: US (occurrence: US)
  Receive Date: 20120921
  Receipt Date: 20150303
  Transmission Date: 20150721
  Serious: Yes (Death)
  Sender: FDA-Public Use
  Company Number: US-ROCHE-1102402

PATIENT
  Sex: Male

DRUGS (19)
  1. AVASTIN [Suspect]
     Active Substance: BEVACIZUMAB
     Indication: NEOPLASM MALIGNANT
  2. DOXIL [Concomitant]
     Active Substance: DOXORUBICIN HYDROCHLORIDE
     Route: 042
     Dates: start: 20090812
  3. TORISEL [Concomitant]
     Active Substance: TEMSIROLIMUS
     Route: 042
     Dates: start: 20090812
  4. CAPHOSOL [Concomitant]
  5. EMLA [Concomitant]
     Active Substance: LIDOCAINE\PRILOCAINE
     Dosage: 1 APPLICATION TOPICAL
     Route: 065
  6. TYLENOL [Concomitant]
     Active Substance: ACETAMINOPHEN
     Indication: PAIN
     Dosage: 1-2 TABLET PRN
     Route: 048
  7. PREDNISONE. [Concomitant]
     Active Substance: PREDNISONE
  8. TRAZODONE [Concomitant]
     Active Substance: TRAZODONE HYDROCHLORIDE
     Indication: INSOMNIA
     Dosage: AS NEEDED
     Route: 048
  9. DILAUDID [Concomitant]
     Active Substance: HYDROMORPHONE HYDROCHLORIDE
  10. IRINOTECAN [Concomitant]
     Active Substance: IRINOTECAN
     Indication: PRODUCT USED FOR UNKNOWN INDICATION
     Route: 065
     Dates: start: 20090522
  11. XELODA [Suspect]
     Active Substance: CAPECITABINE
     Indication: COLON CANCER METASTATIC
     Route: 065
     Dates: start: 20090522
  12. LEVAQUIN [Concomitant]
     Active Substance: LEVOFLOXACIN
  13. TORISEL [Concomitant]
     Active Substance: TEMSIROLIMUS
     Route: 042
     Dates: start: 20091223
  14. VALTREX [Concomitant]
     Active Substance: VALACYCLOVIR HYDROCHLORIDE
     Route: 048
  15. CARAFATE [Concomitant]
     Active Substance: SUCRALFATE
  16. AVASTIN [Suspect]
     Active Substance: BEVACIZUMAB
     Indication: COLON CANCER
     Route: 042
     Dates: start: 20090812, end: 20100120
  17. BENADRYL [Concomitant]
     Active Substance: DIPHENHYDRAMINE HYDROCHLORIDE
     Indication: PRURITUS
     Dosage: AS NEEDED
     Route: 048
  18. REQUIP [Concomitant]
     Active Substance: ROPINIROLE HYDROCHLORIDE
     Dosage: 1-3 HOURS AS NEEDED AT BEDTIME
     Route: 048
  19. ZAROXOLYN [Concomitant]
     Active Substance: METOLAZONE
     Dosage: AS NEEDED
     Route: 048

REACTIONS (20)
  - Cough [Unknown]
  - Thrombocytopenia [Unknown]
  - Asthenopia [Unknown]
  - Hyperlipidaemia [Unknown]
  - Dry skin [Unknown]
  - Metastases to liver [Unknown]
  - Pyrexia [Recovered/Resolved]
  - Fatigue [Unknown]
  - Nail disorder [Unknown]
  - Death [Fatal]
  - Decreased appetite [Unknown]
  - Epistaxis [Unknown]
  - Rash [Unknown]
  - Anaemia [Unknown]
  - Insomnia [Unknown]
  - Mucosal inflammation [Recovering/Resolving]
  - Haematuria [Unknown]
  - Headache [Unknown]
  - Pain [Unknown]
  - Nausea [Unknown]
